FAERS Safety Report 6537999 (Version 4)
Quarter: 2013Q3

REPORT INFORMATION
  Report Type: Report from Study
  Country: ES (occurrence: ES)
  Receive Date: 20080129
  Receipt Date: 20130827
  Transmission Date: 20140515
  Serious: Yes (Death, Hospitalization)
  Sender: FDA-Public Use
  Company Number: ES-PFIZER INC-2005162012

PATIENT
  Age: 59 Year
  Sex: Male
  Weight: 50.5 kg

DRUGS (5)
  1. SUNITINIB MALATE [Suspect]
     Indication: NON-SMALL CELL LUNG CANCER
     Dosage: 50 MG, 1X/DAY
     Route: 048
     Dates: start: 20050920, end: 200511
  2. FENTANYL [Concomitant]
     Dosage: 75 UG/ 3 DAYS
  3. OMEPRAZOLE [Concomitant]
     Dosage: 20 MG/12 HOURS
  4. MEGESTROL [Concomitant]
     Dosage: 160 MG/12 HOURS
  5. IBUPROFEN [Concomitant]
     Dosage: 600 MG/8 HOURS

REACTIONS (4)
  - Cerebrovascular accident [Fatal]
  - Pneumonia [Unknown]
  - Rectal haemorrhage [Unknown]
  - Mucosal inflammation [Unknown]
